FAERS Safety Report 16553250 (Version 4)
Quarter: 2019Q4

REPORT INFORMATION
  Report Type: Spontaneous
  Country: JP (occurrence: JP)
  Receive Date: 20190710
  Receipt Date: 20191129
  Transmission Date: 20200122
  Serious: Yes (Death, Life-Threatening, Other)
  Sender: FDA-Public Use
  Company Number: JP-009507513-1907JPN000602J

PATIENT
  Age: 74 Year
  Sex: Male
  Weight: 64 kg

DRUGS (9)
  1. BAYASPIRIN [Concomitant]
     Active Substance: ASPIRIN
     Indication: CEREBRAL INFARCTION
     Dosage: 100 MILLIGRAM, QD
     Route: 048
  2. MICOMBI [Concomitant]
     Active Substance: HYDROCHLOROTHIAZIDE\TELMISARTAN
     Indication: CEREBRAL INFARCTION
     Dosage: 1 DOSAGE FORM, QD
     Route: 048
  3. CONIEL [Concomitant]
     Active Substance: BENIDIPINE HYDROCHLORIDE
     Indication: CEREBRAL INFARCTION
     Dosage: 8 MILLIGRAM, QD
     Route: 048
  4. PEMETREXED DISODIUM [Suspect]
     Active Substance: PEMETREXED DISODIUM
     Indication: NON-SMALL CELL LUNG CANCER
     Dosage: 840 MILLIGRAM, Q3W
     Route: 041
     Dates: start: 20190206, end: 20190620
  5. ETHYL ICOSAPENTATE [Concomitant]
     Active Substance: ICOSAPENT ETHYL
     Indication: CEREBRAL INFARCTION
     Dosage: 900 MILLIGRAM, BID
     Route: 048
  6. PANVITAN [Concomitant]
     Active Substance: VITAMINS
     Indication: NON-SMALL CELL LUNG CANCER
     Dosage: 1 GRAM, QD
     Route: 048
  7. LIPITOR [Concomitant]
     Active Substance: ATORVASTATIN CALCIUM
     Indication: GLYCOSURIA
     Dosage: 5 MILLIGRAM, QD
     Route: 048
  8. KEYTRUDA [Suspect]
     Active Substance: PEMBROLIZUMAB
     Indication: NON-SMALL CELL LUNG CANCER
     Dosage: 200 MILLIGRAM, Q3W
     Route: 041
     Dates: start: 20190206, end: 20190620
  9. CARBOPLATIN. [Suspect]
     Active Substance: CARBOPLATIN
     Indication: NON-SMALL CELL LUNG CANCER
     Dosage: 380 MILLIGRAM, Q3W
     Route: 041
     Dates: start: 20190206, end: 20190411

REACTIONS (6)
  - Sudden death [Fatal]
  - Decreased appetite [Unknown]
  - Nausea [Recovered/Resolved]
  - Acute respiratory distress syndrome [Fatal]
  - Seizure [Recovering/Resolving]
  - Constipation [Recovering/Resolving]

NARRATIVE: CASE EVENT DATE: 20190208
